FAERS Safety Report 15381901 (Version 1)
Quarter: 2018Q4

REPORT INFORMATION
  Report Type: Spontaneous
  Country: US (occurrence: US)
  Receive Date: 20180913
  Receipt Date: 20180913
  Transmission Date: 20190204
  Serious: Yes (Hospitalization)
  Sender: FDA-Public Use
  Company Number: US-ACELLA PHARMACEUTICALS, LLC-2054905

PATIENT
  Age: 53 Year
  Sex: Female
  Weight: 63.64 kg

DRUGS (1)
  1. NP THYROID [Suspect]
     Active Substance: LEVOTHYROXINE\LIOTHYRONINE
     Indication: AUTOIMMUNE THYROIDITIS
     Route: 048
     Dates: start: 201803, end: 201806

REACTIONS (18)
  - Lacrimation increased [Recovered/Resolved]
  - Joint noise [Not Recovered/Not Resolved]
  - Eye pain [Recovered/Resolved]
  - Muscular weakness [Not Recovered/Not Resolved]
  - Anti-thyroid antibody positive [Unknown]
  - Anxiety [Unknown]
  - Eyelid irritation [Recovered/Resolved]
  - Dysstasia [Not Recovered/Not Resolved]
  - Thyroxine increased [Unknown]
  - Nail disorder [Unknown]
  - Pain in extremity [Not Recovered/Not Resolved]
  - Palpitations [Unknown]
  - Paralysis [Not Recovered/Not Resolved]
  - Periarthritis [Not Recovered/Not Resolved]
  - Atrial fibrillation [Unknown]
  - Blood thyroid stimulating hormone increased [Unknown]
  - Bone pain [Not Recovered/Not Resolved]
  - Thyrotoxic crisis [Unknown]

NARRATIVE: CASE EVENT DATE: 201804
